FAERS Safety Report 5872271-6 (Version None)
Quarter: 2008Q3

REPORT INFORMATION
  Report Type: 
  Country: None (occurrence: None)
  Receive Date: 20080905
  Receipt Date: 20080825
  Transmission Date: 20090109
  Serious: Yes (Hospitalization)
  Sender: FDA-Public Use
  Company Number: US-MERCK-0808USA00572

PATIENT
  Age: 37 Year
  Sex: Male

DRUGS (1)
  1. VYTORIN [Suspect]
     Indication: BLOOD CHOLESTEROL INCREASED
     Route: 048
     Dates: start: 20030801, end: 20080301

REACTIONS (3)
  - DIVERTICULITIS [None]
  - GASTROINTESTINAL ULCER [None]
  - WEIGHT DECREASED [None]
